FAERS Safety Report 4429383-3 (Version None)
Quarter: 2004Q3

REPORT INFORMATION
  Report Type: 
  Country: None (occurrence: None)
  Receive Date: 20040816
  Receipt Date: 20040803
  Transmission Date: 20050211
  Serious: Yes (Other)
  Sender: FDA-Public Use
  Company Number: 2004053298

PATIENT
  Age: 79 Year
  Sex: Male

DRUGS (14)
  1. LIPITOR [Suspect]
     Indication: ILL-DEFINED DISORDER
     Dosage: 10 MG (10 MG, 1 IN 1 D), ORAL
     Route: 048
  2. CLARITHROMYCIN [Suspect]
     Indication: ILL-DEFINED DISORDER
     Dosage: 1000 MG (500 MG, 2 IN 1 D), ORAL
     Route: 048
  3. DIGOXIN [Concomitant]
  4. ASPIRIN [Concomitant]
  5. ROSIGLITAZONE MALEATE [Concomitant]
  6. COLCHICINE (COLCHICINE) [Concomitant]
  7. CARVEDILOL [Concomitant]
  8. FOLIC ACID [Concomitant]
  9. GLYBURIDE [Concomitant]
  10. HYDRALAZINE HCL TAB [Concomitant]
  11. FUROSEMIDE [Concomitant]
  12. NITROGLYCERIN [Concomitant]
  13. CYANOCOBALAMIN (CYANOCOBALAMIN) [Concomitant]
  14. ZOPICLONE (ZOPICLONE) [Concomitant]

REACTIONS (3)
  - DRUG INTERACTION [None]
  - MYOSITIS [None]
  - RHABDOMYOLYSIS [None]
